FAERS Safety Report 23524747 (Version 1)
Quarter: 2024Q1

REPORT INFORMATION
  Report Type: Spontaneous
  Country: BR (occurrence: BR)
  Receive Date: 20240215
  Receipt Date: 20240215
  Transmission Date: 20240410
  Serious: Yes (Other)
  Sender: FDA-Public Use
  Company Number: BR-CHEPLA-2024001911

PATIENT
  Sex: Female
  Weight: 85 kg

DRUGS (12)
  1. CLONAZEPAM [Suspect]
     Active Substance: CLONAZEPAM
     Indication: Anxiety
     Dosage: STRENGTH 0.5MG-3 TABLETS A DAY?DAILY DOSE: 3 DOSAGE FORM
     Route: 048
     Dates: start: 2013, end: 2021
  2. CLONAZEPAM [Suspect]
     Active Substance: CLONAZEPAM
     Indication: Panic disorder
     Dosage: STRENGTH 0.5MG-3 TABLETS A DAY?DAILY DOSE: 3 DOSAGE FORM
     Route: 048
     Dates: start: 2013, end: 2021
  3. CLONAZEPAM [Suspect]
     Active Substance: CLONAZEPAM
     Indication: Depression
     Dosage: STRENGTH 0.5MG-3 TABLETS A DAY?DAILY DOSE: 3 DOSAGE FORM
     Route: 048
     Dates: start: 2013, end: 2021
  4. CLONAZEPAM [Suspect]
     Active Substance: CLONAZEPAM
     Indication: Anxiety
     Dosage: STRENGTH 0.25MG/ 2 TABLETS A DAY.?TWO TIMES A DAY (1 IN THE MORNING AND 1 IN THE AFTERNOON)
     Route: 060
     Dates: start: 2013, end: 2021
  5. CLONAZEPAM [Suspect]
     Active Substance: CLONAZEPAM
     Indication: Panic disorder
     Dosage: STRENGTH 0.25MG/ 2 TABLETS A DAY.?TWO TIMES A DAY (1 IN THE MORNING AND 1 IN THE AFTERNOON)
     Route: 060
     Dates: start: 2013, end: 2021
  6. CLONAZEPAM [Suspect]
     Active Substance: CLONAZEPAM
     Indication: Depression
     Dosage: STRENGTH 0.25MG/ 2 TABLETS A DAY.?TWO TIMES A DAY (1 IN THE MORNING AND 1 IN THE AFTERNOON)
     Route: 060
     Dates: start: 2013, end: 2021
  7. CLONAZEPAM [Suspect]
     Active Substance: CLONAZEPAM
     Indication: Anxiety
     Dosage: 5 TABLETS A DAY. ONGOING?DAILY DOSE: 5 DOSAGE FORM
     Route: 048
     Dates: start: 2021
  8. CLONAZEPAM [Suspect]
     Active Substance: CLONAZEPAM
     Indication: Panic disorder
     Dosage: 5 TABLETS A DAY. ONGOING?DAILY DOSE: 5 DOSAGE FORM
     Route: 048
     Dates: start: 2021
  9. CLONAZEPAM [Suspect]
     Active Substance: CLONAZEPAM
     Indication: Depression
     Dosage: 5 TABLETS A DAY. ONGOING?DAILY DOSE: 5 DOSAGE FORM
     Route: 048
     Dates: start: 2021
  10. CLONAZEPAM [Suspect]
     Active Substance: CLONAZEPAM
     Indication: Anxiety
     Dosage: STRENGTH: 2 MG/ 1 TABLET A DAY.?END DATE: 2021 (2 MONTHS LATER)??DAILY DOSE: 2 MILLIGRAM
     Dates: start: 2021
  11. CLONAZEPAM [Suspect]
     Active Substance: CLONAZEPAM
     Indication: Panic disorder
     Dosage: STRENGTH: 2 MG/ 1 TABLET A DAY.?END DATE: 2021 (2 MONTHS LATER)??DAILY DOSE: 2 MILLIGRAM
     Dates: start: 2021
  12. CLONAZEPAM [Suspect]
     Active Substance: CLONAZEPAM
     Indication: Depression
     Dosage: STRENGTH: 2 MG/ 1 TABLET A DAY.?END DATE: 2021 (2 MONTHS LATER)??DAILY DOSE: 2 MILLIGRAM
     Dates: start: 2021

REACTIONS (6)
  - Arrhythmia [Recovered/Resolved]
  - Constipation [Recovered/Resolved]
  - Rebound effect [Recovered/Resolved]
  - Diarrhoea [Recovered/Resolved]
  - Drug ineffective [Recovered/Resolved]
  - Product use in unapproved indication [Not Recovered/Not Resolved]

NARRATIVE: CASE EVENT DATE: 20130101
